FAERS Safety Report 10130160 (Version 1)
Quarter: 2014Q2

REPORT INFORMATION
  Report Type: Spontaneous
  Country: US (occurrence: US)
  Receive Date: 20140428
  Receipt Date: 20140428
  Transmission Date: 20141212
  Serious: No
  Sender: FDA-Public Use
  Company Number: US-PFIZER INC-2014113436

PATIENT
  Age: 86 Year
  Sex: Female
  Weight: 67.12 kg

DRUGS (2)
  1. TIKOSYN [Suspect]
     Dosage: UNK
  2. TYLENOL [Concomitant]
     Indication: PAIN
     Dosage: UNK

REACTIONS (8)
  - Diarrhoea [Recovered/Resolved]
  - Constipation [Unknown]
  - Diverticulum [Unknown]
  - Eye disorder [Unknown]
  - Lung disorder [Unknown]
  - Hypersensitivity [Unknown]
  - Body height decreased [Unknown]
  - Osteoporosis [Unknown]
